FAERS Safety Report 7396824-1 (Version None)
Quarter: 2011Q1

REPORT INFORMATION
  Report Type: 
  Country: None (occurrence: None)
  Receive Date: 20110325
  Receipt Date: 20110316
  Transmission Date: 20110831
  Serious: Yes (Disabling)
  Sender: FDA-Public Use
  Company Number: 844797

PATIENT
  Age: 48 Year
  Sex: Female

DRUGS (3)
  1. CARBOPLATIN [Suspect]
     Indication: CHEMOTHERAPY
     Dosage: 790 MG MILLIGRAMS, INTRAVENOUS
     Route: 042
     Dates: start: 20101116, end: 20101228
  2. DEXAMETHASONE [Concomitant]
  3. DOCETAXEL [Suspect]
     Indication: CHEMOTHERAPY
     Dosage: 160 MG MILLIGRAMS, INTRAVENOUS
     Route: 042
     Dates: start: 20101116, end: 20101228

REACTIONS (2)
  - PERIPHERAL SENSORY NEUROPATHY [None]
  - ATAXIA [None]
